FAERS Safety Report 4710835-3 (Version None)
Quarter: 2005Q3

REPORT INFORMATION
  Report Type: 
  Country: None (occurrence: None)
  Receive Date: 20050711
  Receipt Date: 20050607
  Transmission Date: 20060218
  Serious: Yes (Other)
  Sender: FDA-Public Use
  Company Number: CA-GLAXOSMITHKLINE-A0561929A

PATIENT
  Age: 35 Year
  Sex: Female
  Weight: 48.6 kg

DRUGS (1)
  1. HEPTOVIR [Suspect]
     Indication: HEPATITIS B
     Dosage: 100MG PER DAY
     Route: 048
     Dates: start: 20031204

REACTIONS (3)
  - HYPERTHYROIDISM [None]
  - PRURITUS [None]
  - URTICARIA [None]
